FAERS Safety Report 16844754 (Version 1)
Quarter: 2019Q4

REPORT INFORMATION
  Report Type: Spontaneous
  Country: US (occurrence: US)
  Receive Date: 20190924
  Receipt Date: 20190924
  Transmission Date: 20200122
  Serious: Yes (Other)
  Sender: FDA-Public Use
  Company Number: None

PATIENT
  Age: 15 Month
  Sex: Male
  Weight: 9 kg

DRUGS (3)
  1. BUDESONIDE WITH NEBULIZER [Concomitant]
  2. CLARITIN [Concomitant]
     Active Substance: LORATADINE
  3. MONTELUKAST SODIUM ORAL GRANULES, USP [Suspect]
     Active Substance: MONTELUKAST SODIUM
     Indication: ASTHMA
     Dosage: ?          QUANTITY:30 SACHETS;?
     Route: 048
     Dates: start: 20190716, end: 20190812

REACTIONS (5)
  - Muscle twitching [None]
  - Psychiatric symptom [None]
  - Depression [None]
  - Lethargy [None]
  - Anger [None]

NARRATIVE: CASE EVENT DATE: 20190720
